FAERS Safety Report 13888697 (Version 1)
Quarter: 2017Q3

REPORT INFORMATION
  Report Type: Spontaneous
  Country: US (occurrence: US)
  Receive Date: 20170821
  Receipt Date: 20170821
  Transmission Date: 20171127
  Serious: Yes (Other)
  Sender: FDA-Public Use
  Company Number: PHHY2017US121042

PATIENT
  Sex: Male

DRUGS (3)
  1. INTERFERON [Interacting]
     Active Substance: INTERFERON
     Indication: HEPATITIS C
     Route: 065
  2. RIBAVIRIN. [Suspect]
     Active Substance: RIBAVIRIN
     Indication: HEPATITIS C
     Route: 065
  3. PEGYLATED INTERFERON ALFA-2A [Interacting]
     Active Substance: PEGINTERFERON ALFA-2A
     Indication: HEPATITIS C
     Route: 065

REACTIONS (6)
  - Porphyria non-acute [Recovered/Resolved]
  - Disease recurrence [Unknown]
  - Drug interaction [Unknown]
  - Pancytopenia [Unknown]
  - Weight decreased [Unknown]
  - Treatment failure [Unknown]
